FAERS Safety Report 15628778 (Version 3)
Quarter: 2019Q1

REPORT INFORMATION
  Report Type: Spontaneous
  Country: PL (occurrence: PL)
  Receive Date: 20181116
  Receipt Date: 20190215
  Transmission Date: 20190417
  Serious: Yes (Other)
  Sender: FDA-Public Use
  Company Number: PL-MARINA BIOTECH, INC.-2018MARINA000529

PATIENT

DRUGS (9)
  1. CO-PRESTARIUM [Suspect]
     Active Substance: AMLODIPINE\PERINDOPRIL
     Indication: PRODUCT USE ISSUE
  2. POLOCARD [Concomitant]
     Active Substance: ASPIRIN
     Indication: CEREBROVASCULAR ACCIDENT
  3. PRESTARIUM                         /00790703/ [Suspect]
     Active Substance: PERINDOPRIL ARGININE
     Dosage: 10 MG, QD
     Route: 048
     Dates: start: 201810, end: 20181104
  4. POLOCARD [Concomitant]
     Active Substance: ASPIRIN
     Indication: PROPHYLAXIS
     Dosage: 75 MG, QD
     Route: 048
  5. PRESTARIUM                         /00790703/ [Suspect]
     Active Substance: PERINDOPRIL ARGININE
     Indication: HYPERTENSION
     Dosage: 10 MG, QD
     Route: 048
     Dates: start: 2013, end: 2018
  6. TRIPLIXAM [Suspect]
     Active Substance: AMLODIPINE BESYLATE\INDAPAMIDE\PERINDOPRIL ARGININE
     Indication: HYPERTENSION
     Dosage: 1 (10MG/2.5MG/10MG) TABLET, QD
     Route: 048
     Dates: start: 20181105, end: 201811
  7. METIZOL                            /00022901/ [Concomitant]
     Indication: HYPERTHYROIDISM
     Dosage: 5 MG, QD
     Route: 048
  8. CO-PRESTARIUM [Suspect]
     Active Substance: AMLODIPINE\PERINDOPRIL
     Indication: HYPERTENSION
     Dosage: 1 (10MG/10MG) TABLET, QD
     Route: 048
     Dates: start: 2018, end: 201810
  9. TRIPLIXAM [Suspect]
     Active Substance: AMLODIPINE BESYLATE\INDAPAMIDE\PERINDOPRIL ARGININE
     Indication: PRODUCT USE ISSUE

REACTIONS (3)
  - Blood pressure decreased [Recovered/Resolved]
  - Blood pressure inadequately controlled [Recovered/Resolved]
  - General physical health deterioration [Recovered/Resolved]

NARRATIVE: CASE EVENT DATE: 2018
